FAERS Safety Report 10841340 (Version 2)
Quarter: 2015Q1

REPORT INFORMATION
  Report Type: Spontaneous
  Country: JP (occurrence: None)
  Receive Date: 20150218
  Receipt Date: 20150218
  Transmission Date: 20150721
  Serious: Yes (Other)
  Sender: FDA-Public Use
  Company Number: JP2015JPN016570

PATIENT
  Age: 38 Year
  Sex: Female

DRUGS (6)
  1. ISENTRESS [Concomitant]
     Active Substance: RALTEGRAVIR POTASSIUM
  2. RIFAMPICIN (RIFAMPICIN) [Concomitant]
     Active Substance: RIFAMPIN
  3. ISONIAZID (ISONIAZID) [Concomitant]
     Active Substance: ISONIAZID
  4. ETHAMBUTOL [Concomitant]
     Active Substance: ETHAMBUTOL HYDROCHLORIDE
  5. EPZICOM [Suspect]
     Active Substance: ABACAVIR SULFATE\LAMIVUDINE
     Indication: HIV INFECTION
     Route: 048
  6. PYRAZINAMIDE (PYRAZINAMIDE) [Concomitant]
     Active Substance: PYRAZINAMIDE

REACTIONS (10)
  - Lymphadenopathy [None]
  - C-reactive protein increased [None]
  - White blood cell count increased [None]
  - Lung infiltration [None]
  - Pyrexia [None]
  - Pulmonary tuberculosis [None]
  - Lymphocyte percentage decreased [None]
  - Immune reconstitution inflammatory syndrome [None]
  - Red blood cell sedimentation rate increased [None]
  - Condition aggravated [None]
